FAERS Safety Report 7263978-7 (Version None)
Quarter: 2011Q1

REPORT INFORMATION
  Report Type: 
  Country: None (occurrence: None)
  Receive Date: 20110130
  Receipt Date: 20101029
  Transmission Date: 20110831
  Serious: No
  Sender: FDA-Public Use
  Company Number: US-ABBOTT-10P-163-0682711-00

PATIENT
  Sex: Female
  Weight: 72.64 kg

DRUGS (5)
  1. HUMIRA [Suspect]
     Indication: RHEUMATOID ARTHRITIS
     Route: 058
     Dates: start: 20100101, end: 20100930
  2. HUMIRA [Suspect]
     Indication: OSTEOARTHRITIS
  3. JOINT ADVANTAGEGOLD [Concomitant]
     Indication: PRODUCT USED FOR UNKNOWN INDICATION
  4. OMEGA Q PLUS [Concomitant]
     Indication: PRODUCT USED FOR UNKNOWN INDICATION
  5. HUMIRA [Suspect]

REACTIONS (1)
  - DIZZINESS [None]
